FAERS Safety Report 6804609-7 (Version None)
Quarter: 2010Q2

REPORT INFORMATION
  Report Type: 
  Country: None (occurrence: None)
  Receive Date: 20100628
  Receipt Date: 20071003
  Transmission Date: 20101027
  Serious: No
  Sender: FDA-Public Use
  Company Number: US-PFIZER INC-2007017616

PATIENT
  Age: 80 Year
  Sex: Female

DRUGS (4)
  1. CADUET [Suspect]
     Dates: start: 20070219
  2. SYNTHROID [Concomitant]
  3. ACETYLSALICYLIC ACID [Concomitant]
  4. DICYCLOMINE [Concomitant]

REACTIONS (5)
  - BACK PAIN [None]
  - BALANCE DISORDER [None]
  - BLOOD PRESSURE INCREASED [None]
  - BONE PAIN [None]
  - TENSION HEADACHE [None]
